FAERS Safety Report 15439992 (Version 1)
Quarter: 2018Q3

REPORT INFORMATION
  Report Type: Spontaneous
  Country: US (occurrence: US)
  Receive Date: 20180925
  Receipt Date: 20180925
  Transmission Date: 20181010
  Serious: Yes (Hospitalization)
  Sender: FDA-Public Use
  Company Number: None

PATIENT
  Age: 31 Year
  Sex: Male

DRUGS (8)
  1. DUONEB [Concomitant]
     Active Substance: ALBUTEROL SULFATE\IPRATROPIUM BROMIDE
     Dates: start: 20180802
  2. PROAIR HFA [Concomitant]
     Active Substance: ALBUTEROL SULFATE
     Dates: start: 20180802
  3. NUCYNTA [Concomitant]
     Active Substance: TAPENTADOL HYDROCHLORIDE
     Dates: start: 20180817
  4. PULMOZYME [Concomitant]
     Active Substance: DORNASE ALFA
     Dates: start: 20180802
  5. MELOXICAM 7.5MG [Concomitant]
     Active Substance: MELOXICAM
     Dates: start: 20180908
  6. BETHKIS [Suspect]
     Active Substance: TOBRAMYCIN
     Indication: CYSTIC FIBROSIS
     Route: 055
  7. LIDOCAINE 5% PATCH [Concomitant]
     Active Substance: LIDOCAINE
     Dates: start: 20180802
  8. BUDESONIDE 0.25MG/2ML [Concomitant]
     Dates: start: 20180802

REACTIONS (1)
  - Infection [None]

NARRATIVE: CASE EVENT DATE: 20180924
